FAERS Safety Report 9233158 (Version 1)
Quarter: 2013Q1

REPORT INFORMATION
  Report Type: Spontaneous
  Country: US (occurrence: None)
  Receive Date: 20121031
  Receipt Date: 20121031
  Transmission Date: 20140127
  Serious: No
  Sender: FDA-Public Use
  Company Number: PHEH2012US012026

PATIENT
  Sex: Female

DRUGS (9)
  1. GILENYA (FTY)CAPSULE, 0.5MG [Suspect]
     Indication: MULTIPLE SCLEROSIS
     Route: 048
     Dates: start: 20120612
  2. VITAMIN D (ERGOCALCIFEROL) [Concomitant]
  3. PRISTIQ (DESVENLAFAXINE SUCCINATE) [Concomitant]
  4. TRICOR (FENOFIBRATE) [Concomitant]
  5. SIMVASTATIN (SIMVASTATIN) [Concomitant]
  6. AMLODIPINE (AMLODIPINE) [Concomitant]
  7. ACIPHEX (RABEPRAZOLE SODIUM) [Concomitant]
  8. VAGIFEM (ETRADIOL) [Concomitant]
  9. VITAMIN B12 (CYANOCOBALMIN) [Concomitant]

REACTIONS (1)
  - Hot flush [None]
